FAERS Safety Report 6369097-6 (Version None)
Quarter: 2009Q3

REPORT INFORMATION
  Report Type: 
  Country: None (occurrence: None)
  Receive Date: 20090922
  Receipt Date: 20090917
  Transmission Date: 20100115
  Serious: Yes (Death, Other)
  Sender: FDA-Public Use
  Company Number: PHHY2009AR40398

PATIENT
  Age: 40 Year
  Sex: Female

DRUGS (2)
  1. BASILIXIMAB [Suspect]
     Indication: LIVER TRANSPLANT
     Dosage: UNK
  2. CORTICOSTEROID NOS [Suspect]
     Indication: LIVER TRANSPLANT

REACTIONS (3)
  - GASTROINTESTINAL HAEMORRHAGE [None]
  - PNEUMONIA NECROTISING [None]
  - PSEUDOMONAS INFECTION [None]
